FAERS Safety Report 8069721-6 (Version None)
Quarter: 2012Q1

REPORT INFORMATION
  Report Type: 
  Country: None (occurrence: None)
  Receive Date: 20120125
  Receipt Date: 20110906
  Transmission Date: 20120608
  Serious: No
  Sender: FDA-Public Use
  Company Number: US-PFIZER INC-2011US-44832

PATIENT
  Sex: Female
  Weight: 58.05 kg

DRUGS (5)
  1. MULTI-VITAMINS [Concomitant]
     Dosage: UNK
  2. CALAN [Suspect]
     Indication: HYPERTENSION
     Dosage: 120 MG, 2X/DAY
     Route: 048
     Dates: start: 19920101
  3. CALCIUM [Concomitant]
     Dosage: UNK
  4. PREMARIN [Concomitant]
     Dosage: UNK
  5. TENORMIN [Concomitant]
     Dosage: UNK
     Dates: start: 19860101

REACTIONS (3)
  - DYSPNOEA [None]
  - BLOOD PRESSURE FLUCTUATION [None]
  - MEDICATION ERROR [None]
